FAERS Safety Report 26213921 (Version 1)
Quarter: 2025Q4

REPORT INFORMATION
  Report Type: Spontaneous
  Country: EU (occurrence: EU)
  Receive Date: 20251230
  Receipt Date: 20251230
  Transmission Date: 20260119
  Serious: Yes (Life-Threatening)
  Sender: AMGEN
  Company Number: EU-GLAXOSMITHKLINE-FR2020GSK215844

PATIENT
  Age: 53 Year
  Sex: Female
  Weight: 60 kg

DRUGS (23)
  1. BEVACIZUMAB [Suspect]
     Active Substance: BEVACIZUMAB
     Indication: Ovarian cancer
     Dosage: 925 MG
     Route: 040
     Dates: start: 20190902
  2. BEVACIZUMAB [Suspect]
     Active Substance: BEVACIZUMAB
     Dosage: 950 MG
     Route: 040
     Dates: start: 20200127
  3. BEVACIZUMAB [Suspect]
     Active Substance: BEVACIZUMAB
     Dosage: 900 MG
     Route: 040
     Dates: start: 20200514
  4. BEVACIZUMAB [Suspect]
     Active Substance: BEVACIZUMAB
     Dosage: 875 MG
     Route: 040
     Dates: start: 20200611
  5. BEVACIZUMAB [Suspect]
     Active Substance: BEVACIZUMAB
     Dosage: 850 MG
     Route: 040
     Dates: start: 20200723
  6. BEVACIZUMAB [Suspect]
     Active Substance: BEVACIZUMAB
     Dosage: 875 MG
     Route: 040
     Dates: start: 20200820
  7. BEVACIZUMAB [Suspect]
     Active Substance: BEVACIZUMAB
     Dosage: 850 MG
     Route: 040
     Dates: start: 20200910
  8. BEVACIZUMAB [Suspect]
     Active Substance: BEVACIZUMAB
     Dosage: 875 MG
     Route: 040
     Dates: start: 20201001
  9. BEVACIZUMAB [Suspect]
     Active Substance: BEVACIZUMAB
     Dosage: 850 MG
     Route: 040
     Dates: start: 20201022, end: 20201022
  10. NIRAPARIB [Suspect]
     Active Substance: NIRAPARIB
     Indication: Ovarian cancer
     Dosage: UNK
     Route: 065
     Dates: start: 20200330
  11. NIRAPARIB [Suspect]
     Active Substance: NIRAPARIB
     Dosage: UNK
     Route: 065
     Dates: start: 20200611
  12. NIRAPARIB [Suspect]
     Active Substance: NIRAPARIB
     Dosage: UNK
     Route: 065
     Dates: start: 20200714
  13. DOSTARLIMAB [Suspect]
     Active Substance: DOSTARLIMAB
     Indication: Ovarian cancer
     Dosage: UNK
     Route: 065
     Dates: start: 20190902
  14. DOSTARLIMAB [Suspect]
     Active Substance: DOSTARLIMAB
     Dosage: UNK
     Route: 065
     Dates: start: 20200309, end: 20200910
  15. CARBOPLATIN [Suspect]
     Active Substance: CARBOPLATIN
     Indication: Ovarian cancer
     Dosage: 480 MG
     Route: 040
     Dates: start: 20190812
  16. CARBOPLATIN [Suspect]
     Active Substance: CARBOPLATIN
     Dosage: 441 MG
     Route: 040
     Dates: start: 20190902
  17. CARBOPLATIN [Suspect]
     Active Substance: CARBOPLATIN
     Dosage: 410 MG
     Route: 040
     Dates: start: 20190923
  18. CARBOPLATIN [Suspect]
     Active Substance: CARBOPLATIN
     Dosage: 450 MG
     Route: 040
     Dates: start: 20191028
  19. CARBOPLATIN [Suspect]
     Active Substance: CARBOPLATIN
     Dosage: 400 MG
     Route: 040
     Dates: start: 20200127
  20. CARBOPLATIN [Suspect]
     Active Substance: CARBOPLATIN
     Dosage: 440 MG
     Route: 040
     Dates: start: 20200217
  21. PACLITAXEL [Suspect]
     Active Substance: PACLITAXEL
     Indication: Ovarian cancer
     Dosage: 300 MG
     Route: 040
     Dates: start: 20190812
  22. PACLITAXEL [Suspect]
     Active Substance: PACLITAXEL
     Dosage: 240 MG
     Route: 040
     Dates: start: 20191028
  23. PACLITAXEL [Suspect]
     Active Substance: PACLITAXEL
     Dosage: 210 MG
     Route: 040
     Dates: start: 20200217

REACTIONS (1)
  - Thrombotic microangiopathy [Recovered/Resolved]

NARRATIVE: CASE EVENT DATE: 20201022
